FAERS Safety Report 4724322-X (Version None)
Quarter: 2005Q3

REPORT INFORMATION
  Report Type: 
  Country: None (occurrence: None)
  Receive Date: 20050722
  Receipt Date: 20050722
  Transmission Date: 20060218
  Serious: Yes (Hospitalization)
  Sender: FDA-Public Use
  Company Number: None

PATIENT
  Age: 64 Year
  Sex: Male
  Weight: 65.7716 kg

DRUGS (3)
  1. CARBOPLATIN [Suspect]
     Indication: SMALL CELL LUNG CANCER EXTENSIVE STAGE
     Dosage: 393 MG IV EVERY 3 WKS
     Route: 042
     Dates: start: 20050705
  2. IRINOTECAN 86.5 MG [Suspect]
     Indication: SMALL CELL LUNG CANCER EXTENSIVE STAGE
     Dosage: 86.5 MG IV WEEKLY X2 THEN OFF 1 WK
     Route: 042
     Dates: start: 20050705
  3. IRINOTECAN 86.5 MG [Suspect]
     Indication: SMALL CELL LUNG CANCER EXTENSIVE STAGE
     Dosage: 86.5 MG IV WEEKLY X2 THEN OFF 1 WK
     Route: 042
     Dates: start: 20050712

REACTIONS (2)
  - HERPES ZOSTER [None]
  - NEUTROPENIA [None]
